FAERS Safety Report 18552039 (Version 2)
Quarter: 2020Q4

REPORT INFORMATION
  Report Type: Other
  Country: JP (occurrence: JP)
  Receive Date: 20201127
  Receipt Date: 20201217
  Transmission Date: 20210114
  Serious: Yes (Other)
  Sender: FDA-Public Use
  Company Number: JP-ROCHE-2721145

PATIENT
  Sex: Female

DRUGS (11)
  1. XYZAL [Concomitant]
     Active Substance: LEVOCETIRIZINE DIHYDROCHLORIDE
     Indication: CHRONIC SPONTANEOUS URTICARIA
     Dosage: UNK
     Route: 065
  2. ALLELOCK [Concomitant]
     Active Substance: OLOPATADINE HYDROCHLORIDE
     Dosage: INCREASED THE DOSAGES TO DOUBLE
     Route: 065
  3. RUPAFIN [Concomitant]
     Active Substance: RUPATADINE FUMARATE
     Indication: CHRONIC SPONTANEOUS URTICARIA
     Dosage: UNK
     Route: 048
  4. XOLAIR [Suspect]
     Active Substance: OMALIZUMAB
     Indication: CHRONIC SPONTANEOUS URTICARIA
     Route: 058
     Dates: start: 201909, end: 20191223
  5. XYZAL [Concomitant]
     Active Substance: LEVOCETIRIZINE DIHYDROCHLORIDE
     Dosage: INCREASED THE DOSAGES TO DOUBLE
     Route: 065
  6. TALION [Concomitant]
     Dosage: INCREASED THE DOSAGES TO DOUBLE
     Route: 048
  7. GASTER [Concomitant]
     Active Substance: FAMOTIDINE
     Dosage: INCREASED THE DOSAGES TO DOUBLE
     Route: 065
  8. TALION [Concomitant]
     Indication: CHRONIC SPONTANEOUS URTICARIA
     Dosage: UNK
     Route: 048
  9. RUPAFIN [Concomitant]
     Active Substance: RUPATADINE FUMARATE
     Dosage: INCREASED THE DOSAGES TO DOUBLE
     Route: 048
  10. ALLELOCK [Concomitant]
     Active Substance: OLOPATADINE HYDROCHLORIDE
     Indication: CHRONIC SPONTANEOUS URTICARIA
     Dosage: UNK
     Route: 065
  11. GASTER [Concomitant]
     Active Substance: FAMOTIDINE
     Indication: CHRONIC SPONTANEOUS URTICARIA
     Dosage: UNK
     Route: 065

REACTIONS (2)
  - Therapeutic product effect incomplete [Unknown]
  - Anaphylactic shock [Unknown]

NARRATIVE: CASE EVENT DATE: 202005
